FAERS Safety Report 5099328-4 (Version None)
Quarter: 2006Q3

REPORT INFORMATION
  Report Type: 
  Country: None (occurrence: None)
  Receive Date: 20060726
  Receipt Date: 20060330
  Transmission Date: 20061208
  Serious: No
  Sender: FDA-Public Use
  Company Number: 012194

PATIENT
  Sex: Female

DRUGS (6)
  1. PRIALT [Suspect]
     Indication: PAIN
     Dosage: 0.11 UG, ONCE/HOUR, INTRATHECAL
     Route: 037
     Dates: start: 20050601, end: 20050909
  2. MORPHINE [Concomitant]
  3. SYNTHROID [Concomitant]
  4. NEXIUM [Concomitant]
  5. PERCOCET /00867901/(OXYCODONE HYDROCHLORIDE, PARACETAMOL) [Concomitant]
  6. LORTAB /00607101/(HYDROCODONE BITARTRATE, PARACETAMOL) [Concomitant]

REACTIONS (3)
  - BLOOD CREATINE PHOSPHOKINASE INCREASED [None]
  - MUSCLE SPASMS [None]
  - MUSCULAR WEAKNESS [None]
